FAERS Safety Report 6554072-9 (Version None)
Quarter: 2010Q1

REPORT INFORMATION
  Report Type: 
  Country: None (occurrence: None)
  Receive Date: 20100125
  Receipt Date: 20100125
  Transmission Date: 20100710
  Serious: No
  Sender: FDA-Public Use
  Company Number: None

PATIENT
  Age: 83 Year
  Sex: Male
  Weight: 68.5 kg

DRUGS (2)
  1. THALIDOMIDE [Suspect]
     Indication: MULTIPLE MYELOMA
     Dosage: 50 MG HS PO
     Route: 048
     Dates: start: 20091001, end: 20091224
  2. MELPHALAN HYDROCHLORIDE [Suspect]
     Indication: MULTIPLE MYELOMA
     Dosage: 10 MG EVERY DAY PO
     Route: 048
     Dates: start: 20091001, end: 20091210

REACTIONS (4)
  - CHOLELITHIASIS [None]
  - HEPATIC CYST [None]
  - HEPATIC STEATOSIS [None]
  - HEPATOCELLULAR INJURY [None]
